FAERS Safety Report 10676714 (Version 1)
Quarter: 2014Q4

REPORT INFORMATION
  Report Type: Spontaneous
  Country: None (occurrence: None)
  Receive Date: 20141223
  Receipt Date: 20141223
  Transmission Date: 20150529
  Serious: Yes (Disabling)
  Sender: FDA-Public Use
  Company Number: None

PATIENT
  Age: 50 Year
  Sex: Male
  Weight: 63.5 kg

DRUGS (1)
  1. ATRIPLA [Suspect]
     Active Substance: EFAVIRENZ\EMTRICITABINE\TENOFOVIR DISOPROXIL FUMARATE
     Indication: HIV INFECTION
     Dosage: 1 PILL; ONCE DAILY
     Route: 048

REACTIONS (10)
  - Joint injury [None]
  - Nightmare [None]
  - Vitamin D decreased [None]
  - Liver function test abnormal [None]
  - Weight decreased [None]
  - Electrolyte imbalance [None]
  - Asthenia [None]
  - Balance disorder [None]
  - Fatigue [None]
  - Diarrhoea [None]

NARRATIVE: CASE EVENT DATE: 20141222
